FAERS Safety Report 14434968 (Version 2)
Quarter: 2018Q1

REPORT INFORMATION
  Report Type: Report from Study
  Country: CN (occurrence: CN)
  Receive Date: 20180125
  Receipt Date: 20180125
  Transmission Date: 20180509
  Serious: Yes (Other)
  Sender: FDA-Public Use
  Company Number: PHHY2016CN117570

PATIENT
  Age: 48 Year
  Sex: Male

DRUGS (101)
  1. MYFORTIC [Suspect]
     Active Substance: MYCOPHENOLATE SODIUM
     Dosage: 1080 MG, QD
     Route: 065
     Dates: start: 20160624, end: 20160905
  2. BASILIXIMAB [Suspect]
     Active Substance: BASILIXIMAB
     Dosage: 20 MG, QD
     Route: 065
     Dates: start: 20160617, end: 20161217
  3. TACROLIMUS. [Suspect]
     Active Substance: TACROLIMUS
     Indication: RENAL TRANSPLANT
     Dosage: 7.5 MG, QD
     Route: 065
     Dates: start: 20160616, end: 20160620
  4. TACROLIMUS. [Suspect]
     Active Substance: TACROLIMUS
     Dosage: 4.5 MG, QD
     Route: 065
     Dates: start: 20160712, end: 20160714
  5. CALCINATE//CALCIUM GLUCONATE [Concomitant]
     Indication: BLOOD POTASSIUM DECREASED
     Dosage: 20 ML, QD
     Route: 042
     Dates: start: 20160614, end: 20160614
  6. HEPARIN SODIUM. [Concomitant]
     Active Substance: HEPARIN SODIUM
     Indication: PRODUCT USED FOR UNKNOWN INDICATION
     Dosage: 1 DF (1.25 WU), QD
     Route: 042
     Dates: start: 20160614, end: 20160614
  7. LANSOPRAZOLE. [Concomitant]
     Active Substance: LANSOPRAZOLE
     Dosage: 60 MG, QD
     Route: 042
     Dates: start: 20160703, end: 20160707
  8. PRAZOSIN HYDROCHLORIDE. [Concomitant]
     Active Substance: PRAZOSIN HYDROCHLORIDE
     Dosage: 1 MG, TID
     Route: 048
     Dates: start: 20160709, end: 20160709
  9. TORASEMIDE [Concomitant]
     Active Substance: TORSEMIDE
     Indication: POLYURIA
     Dosage: 40 MG, QD
     Route: 042
     Dates: start: 20160617, end: 20160620
  10. TORASEMIDE [Concomitant]
     Active Substance: TORSEMIDE
     Dosage: 20 MG, QD
     Route: 042
     Dates: start: 20160621, end: 20160622
  11. TORASEMIDE [Concomitant]
     Active Substance: TORSEMIDE
     Dosage: 40 MG, QD
     Route: 042
     Dates: start: 20160708, end: 20160708
  12. PIPERACILLIN SODIUM [Concomitant]
     Active Substance: PIPERACILLIN SODIUM
     Indication: SKIN TEST
     Dosage: 3000 MG, QD
     Route: 023
     Dates: start: 20161012, end: 20161016
  13. MYFORTIC [Suspect]
     Active Substance: MYCOPHENOLATE SODIUM
     Indication: RENAL TRANSPLANT
     Dosage: 1440 MG, QD
     Route: 065
     Dates: start: 20160614, end: 20160623
  14. MYFORTIC [Suspect]
     Active Substance: MYCOPHENOLATE SODIUM
     Dosage: 540 MG AND 440 MG, UNK
     Route: 065
     Dates: start: 20161228, end: 20161228
  15. TACROLIMUS. [Suspect]
     Active Substance: TACROLIMUS
     Dosage: 5.5 MG, QD
     Route: 065
     Dates: start: 20160705, end: 20160711
  16. TACROLIMUS. [Suspect]
     Active Substance: TACROLIMUS
     Dosage: 1.5 MG, QD
     Route: 065
     Dates: start: 20160718
  17. PREDNISONE. [Suspect]
     Active Substance: PREDNISONE
     Indication: RENAL TRANSPLANT
     Dosage: 50 MG, QD
     Route: 065
     Dates: start: 20160617, end: 20160617
  18. CALCINATE//CALCIUM GLUCONATE [Concomitant]
     Indication: PROPHYLAXIS
     Dosage: 30 ML, QD
     Route: 042
     Dates: start: 20160615, end: 20160615
  19. CALCINATE//CALCIUM GLUCONATE [Concomitant]
     Dosage: 20 ML, QD
     Route: 042
     Dates: start: 20160615, end: 20160615
  20. SODIUM BICARBONATE. [Concomitant]
     Active Substance: SODIUM BICARBONATE
     Indication: SUPPLEMENTATION THERAPY
     Dosage: 250 ML, QD
     Route: 042
     Dates: start: 20160614, end: 20160614
  21. SODIUM BICARBONATE. [Concomitant]
     Active Substance: SODIUM BICARBONATE
     Indication: BLOOD POTASSIUM DECREASED
     Dosage: 125 ML, QD
     Route: 042
     Dates: start: 20160615, end: 20160617
  22. SODIUM BICARBONATE. [Concomitant]
     Active Substance: SODIUM BICARBONATE
     Indication: PROPHYLAXIS
     Dosage: 125 ML, QD
     Route: 042
     Dates: start: 20160618, end: 20160618
  23. PHENOBARBITAL. [Concomitant]
     Active Substance: PHENOBARBITAL
     Indication: PRODUCT USED FOR UNKNOWN INDICATION
     Dosage: 100 MG, QD
     Route: 030
     Dates: start: 20160613, end: 20160613
  24. CEFOPERAZONE SODIUM W/TAZOBACTAM SODIUM [Concomitant]
     Indication: INFECTION PROPHYLAXIS
     Dosage: 5000 MG, BID
     Route: 042
     Dates: start: 20160620, end: 20160629
  25. DEZOCINE [Concomitant]
     Active Substance: DEZOCINE
     Dosage: 30 MG, QD
     Route: 042
     Dates: start: 20160615, end: 20160617
  26. LANSOPRAZOLE. [Concomitant]
     Active Substance: LANSOPRAZOLE
     Dosage: 60 MG, QD
     Route: 042
     Dates: start: 20160624, end: 20160624
  27. LINEZOLID. [Concomitant]
     Active Substance: LINEZOLID
     Indication: INFECTION PROPHYLAXIS
     Dosage: 600 MG, BID
     Route: 042
     Dates: start: 20160614, end: 20160630
  28. MOXIFLOXACIN HYDROCHLORIDE. [Concomitant]
     Active Substance: MOXIFLOXACIN HYDROCHLORIDE
     Indication: PRODUCT USED FOR UNKNOWN INDICATION
     Dosage: 400 MG, QD
     Route: 042
     Dates: start: 20160614, end: 20160614
  29. POTASSIUM CHLORIDE. [Concomitant]
     Active Substance: POTASSIUM CHLORIDE
     Dosage: 30 ML, QD
     Route: 048
     Dates: start: 20160621, end: 20160621
  30. POTASSIUM CHLORIDE. [Concomitant]
     Active Substance: POTASSIUM CHLORIDE
     Indication: PROPHYLAXIS
     Dosage: 2000 MG, TID
     Route: 048
     Dates: start: 20160620, end: 20160620
  31. SODIUM NITROPRUSSIDE. [Concomitant]
     Active Substance: SODIUM NITROPRUSSIDE
     Indication: BLOOD PRESSURE DECREASED
     Dosage: 50 MG, QD
     Route: 042
     Dates: start: 20160614, end: 20160614
  32. SODIUM NITROPRUSSIDE. [Concomitant]
     Active Substance: SODIUM NITROPRUSSIDE
     Dosage: 50 MG, QD
     Route: 042
     Dates: start: 20160616, end: 20160616
  33. PENCICLOVIR. [Concomitant]
     Active Substance: PENCICLOVIR
     Indication: INTERSTITIAL LUNG DISEASE
     Dosage: 500 MG, QD
     Route: 042
     Dates: start: 20161012, end: 20161012
  34. MYFORTIC [Suspect]
     Active Substance: MYCOPHENOLATE SODIUM
     Dosage: 180 MG, QD
     Route: 065
     Dates: start: 20161214, end: 20161214
  35. MYFORTIC [Suspect]
     Active Substance: MYCOPHENOLATE SODIUM
     Dosage: 720 MG AND 440 MG, UNK
     Route: 065
     Dates: start: 20161229, end: 20170405
  36. METHYLPREDNISOLONE. [Suspect]
     Active Substance: METHYLPREDNISOLONE
     Indication: RENAL TRANSPLANT
     Dosage: 500 MG, QD
     Route: 065
     Dates: start: 20160614, end: 20160615
  37. CALCINATE//CALCIUM GLUCONATE [Concomitant]
     Indication: MINERAL SUPPLEMENTATION
     Dosage: 30 ML, QD
     Route: 042
     Dates: start: 20160614, end: 20160614
  38. ALOSTIN//ALPROSTADIL [Concomitant]
     Indication: BLOOD CREATININE INCREASED
     Dosage: 20 UG, QD
     Route: 042
     Dates: start: 20170505, end: 20170509
  39. AMINO ACID [Concomitant]
     Active Substance: AMINO ACIDS
     Indication: SUPPLEMENTATION THERAPY
     Dosage: 250 ML, QD
     Route: 042
     Dates: start: 20160616, end: 20160623
  40. PHOSPHOCREATINE SODIUM [Concomitant]
     Active Substance: PHOSPHOCREATINE SODIUM
     Indication: CARDIOVASCULAR EVENT PROPHYLAXIS
     Dosage: 2000 MG, QD
     Route: 042
     Dates: start: 20160614, end: 20160624
  41. DOPAMINE [Concomitant]
     Active Substance: DOPAMINE\DOPAMINE HYDROCHLORIDE
     Indication: POLYURIA
     Dosage: 10 MG, QD
     Route: 042
     Dates: start: 20160615, end: 20160616
  42. FEBUXOSTAT. [Concomitant]
     Active Substance: FEBUXOSTAT
     Indication: BLOOD URIC ACID DECREASED
     Dosage: 40 MG, QD
     Route: 048
     Dates: start: 20160706, end: 20160717
  43. LANSOPRAZOLE. [Concomitant]
     Active Substance: LANSOPRAZOLE
     Dosage: 60 MG, QD
     Route: 042
     Dates: start: 20160615, end: 20160623
  44. MEROPENEM. [Concomitant]
     Active Substance: MEROPENEM
     Indication: INFECTION PROPHYLAXIS
     Dosage: 500 MG, TID
     Route: 042
     Dates: start: 20160614, end: 20160620
  45. OMEPRAZOLE. [Concomitant]
     Active Substance: OMEPRAZOLE
     Indication: PROPHYLAXIS
     Dosage: 10 MG, BID
     Route: 048
     Dates: start: 20160625, end: 20160703
  46. PHENTOLAMINE MESYLATE. [Concomitant]
     Active Substance: PHENTOLAMINE MESYLATE
     Indication: POLYURIA
     Dosage: 10 MG, QD
     Route: 042
     Dates: start: 20160615, end: 20160616
  47. SODIUM NITROPRUSSIDE. [Concomitant]
     Active Substance: SODIUM NITROPRUSSIDE
     Dosage: 50 MG, QD
     Route: 042
     Dates: start: 20160615, end: 20160615
  48. PIPERACILLIN SODIUM [Concomitant]
     Active Substance: PIPERACILLIN SODIUM
     Indication: INTERSTITIAL LUNG DISEASE
     Dosage: 3000 MG, UNK
     Route: 042
     Dates: start: 20161012, end: 20161012
  49. MYFORTIC [Suspect]
     Active Substance: MYCOPHENOLATE SODIUM
     Dosage: 720 MG, QD
     Route: 065
     Dates: start: 20161111, end: 20161111
  50. MYFORTIC [Suspect]
     Active Substance: MYCOPHENOLATE SODIUM
     Dosage: 180 MG, QD
     Route: 065
     Dates: start: 20161201, end: 20161201
  51. PREDNISONE. [Suspect]
     Active Substance: PREDNISONE
     Dosage: 10 MG, QD
     Route: 065
     Dates: start: 20160629, end: 20160717
  52. VITAMAM 3 [Concomitant]
     Dosage: 1 DF (2 VIAL), QD
     Route: 042
     Dates: start: 20160619, end: 20160623
  53. CEFOPERAZONE SODIUM W/TAZOBACTAM SODIUM [Concomitant]
     Indication: SKIN TEST
     Dosage: 2500 MG, QD
     Route: 023
     Dates: start: 20160620, end: 20160620
  54. FUROSEMIDE. [Concomitant]
     Active Substance: FUROSEMIDE
     Dosage: 40 MG, QD
     Route: 042
     Dates: start: 20160704, end: 20160707
  55. LINEZOLID. [Concomitant]
     Active Substance: LINEZOLID
     Dosage: 600 MG, BID
     Route: 048
     Dates: start: 20160629
  56. SODIUM BICARBONATE. [Concomitant]
     Active Substance: SODIUM BICARBONATE
     Dosage: 1000 MG, QD
     Route: 042
     Dates: start: 20160716, end: 20160716
  57. MYFORTIC [Suspect]
     Active Substance: MYCOPHENOLATE SODIUM
     Dosage: 900 MG, QD
     Route: 065
     Dates: start: 20170406, end: 20170406
  58. TACROLIMUS. [Suspect]
     Active Substance: TACROLIMUS
     Dosage: 6 MG, QD
     Route: 065
     Dates: start: 20160621, end: 20160704
  59. TACROLIMUS. [Suspect]
     Active Substance: TACROLIMUS
     Dosage: 4 MG, QD
     Route: 065
     Dates: start: 20160715, end: 20160717
  60. CALCINATE//CALCIUM GLUCONATE [Concomitant]
     Dosage: 30 ML, QD
     Route: 042
     Dates: start: 20160615, end: 20160615
  61. CALCINATE//CALCIUM GLUCONATE [Concomitant]
     Dosage: 30 ML, QD
     Route: 042
     Dates: start: 20160618, end: 20160618
  62. ALANYL GLUTAMINE [Concomitant]
     Active Substance: ALANYL GLUTAMINE
     Indication: SUPPLEMENTATION THERAPY
     Dosage: 20000 MG, QD
     Route: 042
     Dates: start: 20160614, end: 20160623
  63. ALOSTIN//ALPROSTADIL [Concomitant]
     Indication: PROPHYLAXIS
     Dosage: 20 UG, QD
     Route: 042
     Dates: start: 20160614, end: 20170717
  64. LEVAMLODIPINE BESILATE [Concomitant]
     Active Substance: LEVAMLODIPINE BESYLATE
     Indication: BLOOD PRESSURE DECREASED
     Dosage: 5 MG, QD
     Route: 048
     Dates: start: 20160615, end: 20160717
  65. MAGNESIUM ISOGLYCYRRHIZINATE [Concomitant]
     Active Substance: MAGNESIUM ISOGLYCYRRHIZINATE
     Indication: PROPHYLAXIS
     Dosage: 150 MG, QD
     Route: 042
     Dates: start: 20160614, end: 20160625
  66. RIBOFLAVIN SODIUM PHOSPHATE [Concomitant]
     Indication: PROPHYLAXIS
     Dosage: 20 MG, QD
     Route: 042
     Dates: start: 20160614, end: 20160625
  67. SCOPOLAMINE [Concomitant]
     Active Substance: SCOPOLAMINE
     Indication: PRODUCT USED FOR UNKNOWN INDICATION
     Dosage: 300 MG, QD
     Route: 030
     Dates: start: 20160613, end: 20160613
  68. AMPHOMUL [Concomitant]
     Indication: INFECTION PROPHYLAXIS
     Dosage: 30 MG, QD
     Route: 042
     Dates: start: 20160614, end: 20160705
  69. PREDNISONE. [Suspect]
     Active Substance: PREDNISONE
     Dosage: 40 MG, QD
     Route: 065
     Dates: start: 20160618, end: 20160618
  70. PREDNISONE. [Suspect]
     Active Substance: PREDNISONE
     Dosage: 10 MG, QD
     Route: 065
     Dates: start: 20160621, end: 20160628
  71. CALCINATE//CALCIUM GLUCONATE [Concomitant]
     Dosage: 20 ML, QD
     Route: 042
     Dates: start: 20160617, end: 20160617
  72. SODIUM BICARBONATE. [Concomitant]
     Active Substance: SODIUM BICARBONATE
     Dosage: 125 ML, QD
     Route: 042
     Dates: start: 20160621, end: 20160621
  73. AMBROXOL HYDROCHLORIDE [Concomitant]
     Active Substance: AMBROXOL HYDROCHLORIDE
     Indication: PRODUCTIVE COUGH
     Dosage: 210 MG, QD
     Route: 042
     Dates: start: 20160614, end: 20160625
  74. INDAPAMIDE. [Concomitant]
     Active Substance: INDAPAMIDE
     Indication: BLOOD PRESSURE DECREASED
     Dosage: 1.5 MG, QD
     Route: 048
     Dates: start: 20160620, end: 20160717
  75. METOPROLOL SUCCINATE. [Concomitant]
     Active Substance: METOPROLOL SUCCINATE
     Indication: BLOOD PRESSURE DECREASED
     Dosage: 47.5 MG, BID
     Route: 048
     Dates: start: 20160615, end: 20160706
  76. MICAFUNGIN SODIUM [Concomitant]
     Active Substance: MICAFUNGIN SODIUM
     Indication: PRODUCT USED FOR UNKNOWN INDICATION
     Dosage: 50 MG, QD
     Route: 042
     Dates: start: 20160701, end: 20160701
  77. SODIUM BICARBONATE. [Concomitant]
     Active Substance: SODIUM BICARBONATE
     Indication: SUPPLEMENTATION THERAPY
     Dosage: 1500 MG, TID
     Route: 048
     Dates: start: 20160630
  78. MYFORTIC [Suspect]
     Active Substance: MYCOPHENOLATE SODIUM
     Dosage: 360 MG, QD
     Route: 065
     Dates: start: 20161202, end: 20161227
  79. PREDNISONE. [Suspect]
     Active Substance: PREDNISONE
     Dosage: 30 MG, QD
     Route: 065
     Dates: start: 20160619, end: 20160619
  80. PREDNISONE. [Suspect]
     Active Substance: PREDNISONE
     Dosage: 20 MG, QD
     Route: 065
     Dates: start: 20160620, end: 20160620
  81. DEZOCINE [Concomitant]
     Active Substance: DEZOCINE
     Indication: INCISION SITE PAIN
     Dosage: 30 MG, QD
     Route: 042
     Dates: start: 20160614, end: 20160614
  82. FUROSEMIDE. [Concomitant]
     Active Substance: FUROSEMIDE
     Indication: POLYURIA
     Dosage: 100 MG, QD
     Route: 042
     Dates: start: 20160614, end: 20160614
  83. GANCICLOVIR. [Concomitant]
     Active Substance: GANCICLOVIR
     Indication: INFECTION PROPHYLAXIS
     Dosage: 500 MG, TID
     Route: 048
     Dates: start: 20160716
  84. POTASSIUM CHLORIDE. [Concomitant]
     Active Substance: POTASSIUM CHLORIDE
     Dosage: 30 ML, BID
     Route: 048
     Dates: start: 20160619, end: 20160619
  85. PRAZOSIN HYDROCHLORIDE. [Concomitant]
     Active Substance: PRAZOSIN HYDROCHLORIDE
     Indication: BLOOD PRESSURE DECREASED
     Dosage: 1 MG, TID
     Route: 048
     Dates: start: 20160617, end: 20160618
  86. TORASEMIDE [Concomitant]
     Active Substance: TORSEMIDE
     Dosage: 20 MG, QD
     Route: 042
     Dates: start: 20160712, end: 20160712
  87. MYFORTIC [Suspect]
     Active Substance: MYCOPHENOLATE SODIUM
     Dosage: 1260 MG, QD
     Route: 065
     Dates: start: 20160906, end: 20160906
  88. MYFORTIC [Suspect]
     Active Substance: MYCOPHENOLATE SODIUM
     Dosage: 1440 MG, QD
     Route: 065
     Dates: start: 20160907, end: 20161110
  89. MYFORTIC [Suspect]
     Active Substance: MYCOPHENOLATE SODIUM
     Dosage: 1080 MG, QD
     Route: 065
     Dates: start: 20170407
  90. BASILIXIMAB [Suspect]
     Active Substance: BASILIXIMAB
     Indication: RENAL TRANSPLANT
     Dosage: 20 MG, QD
     Route: 065
     Dates: start: 20160614, end: 20160614
  91. VITAMAM 3 [Concomitant]
     Indication: SUPPLEMENTATION THERAPY
     Dosage: 1 DF (2 VIAL), QD
     Route: 042
     Dates: start: 20160614, end: 20160618
  92. FUROSEMIDE. [Concomitant]
     Active Substance: FUROSEMIDE
     Dosage: 60 MG, QD
     Route: 042
     Dates: start: 20160615, end: 20160616
  93. FUROSEMIDE. [Concomitant]
     Active Substance: FUROSEMIDE
     Dosage: 40 MG, QD
     Route: 042
     Dates: start: 20160625, end: 20160625
  94. LANSOPRAZOLE. [Concomitant]
     Active Substance: LANSOPRAZOLE
     Indication: PROPHYLAXIS
     Dosage: 60 MG, BID
     Route: 042
     Dates: start: 20160614, end: 20160623
  95. POTASSIUM CHLORIDE. [Concomitant]
     Active Substance: POTASSIUM CHLORIDE
     Indication: MINERAL SUPPLEMENTATION
     Dosage: 30 ML,QD
     Route: 048
     Dates: start: 20160618, end: 20160618
  96. POTASSIUM CHLORIDE. [Concomitant]
     Active Substance: POTASSIUM CHLORIDE
     Indication: MINERAL SUPPLEMENTATION
     Dosage: 1000 MG, TID
     Route: 048
     Dates: start: 20160618, end: 20160619
  97. PRAZOSIN HYDROCHLORIDE. [Concomitant]
     Active Substance: PRAZOSIN HYDROCHLORIDE
     Dosage: 2 MG, TID
     Route: 048
     Dates: start: 20160619, end: 20160708
  98. SODIUM BICARBONATE. [Concomitant]
     Active Substance: SODIUM BICARBONATE
     Dosage: 1000 MG, QD
     Route: 048
     Dates: start: 20160708, end: 20160717
  99. SODIUM NITROPRUSSIDE. [Concomitant]
     Active Substance: SODIUM NITROPRUSSIDE
     Dosage: 50 MG, QD
     Route: 042
     Dates: start: 20160617, end: 20160618
  100. TORASEMIDE [Concomitant]
     Active Substance: TORSEMIDE
     Dosage: 40 MG, QD
     Route: 042
     Dates: start: 20160709, end: 20160712
  101. TORASEMIDE [Concomitant]
     Active Substance: TORSEMIDE
     Dosage: 20 MG, QD
     Route: 042
     Dates: start: 20160716, end: 20160716

REACTIONS (7)
  - Blood glucose increased [Unknown]
  - Upper respiratory tract infection [Recovered/Resolved]
  - Diabetes mellitus [Not Recovered/Not Resolved]
  - Diarrhoea [Recovered/Resolved]
  - Anaemia [Recovering/Resolving]
  - Kidney transplant rejection [Recovering/Resolving]
  - Pericardial fibrosis [Unknown]

NARRATIVE: CASE EVENT DATE: 20160616
